FAERS Safety Report 7329800-5 (Version None)
Quarter: 2011Q1

REPORT INFORMATION
  Report Type: 
  Country: None (occurrence: None)
  Receive Date: 20110303
  Receipt Date: 20110207
  Transmission Date: 20110831
  Serious: No
  Sender: FDA-Public Use
  Company Number: US-B.I. PHARMACEUTICALS,INC./RIDGEFIELD-2011-BP-03826BP

PATIENT
  Sex: Female

DRUGS (8)
  1. FEXOFENADINE [Concomitant]
     Indication: HYPERSENSITIVITY
  2. RHINOCORT [Concomitant]
     Indication: HYPERSENSITIVITY
  3. PRADAXA [Suspect]
     Indication: ATRIAL FIBRILLATION
     Dosage: 300 MG
     Route: 048
     Dates: start: 20110202
  4. TOPROL-XL [Concomitant]
     Indication: ATRIAL FIBRILLATION
  5. FUROSEMIDE [Concomitant]
     Indication: ATRIAL FIBRILLATION
  6. MICRO-K [Concomitant]
     Indication: ATRIAL FIBRILLATION
  7. COUMADIN [Concomitant]
     Indication: ATRIAL FIBRILLATION
     Dates: end: 20110130
  8. SINGULAIR [Concomitant]
     Indication: BRONCHITIS CHRONIC

REACTIONS (2)
  - ASTHENIA [None]
  - DIARRHOEA [None]
